FAERS Safety Report 17802951 (Version 1)
Quarter: 2020Q2

REPORT INFORMATION
  Report Type: Spontaneous
  Country: None (occurrence: US)
  Receive Date: 20200519
  Receipt Date: 20200519
  Transmission Date: 20200714
  Serious: No
  Sender: FDA-Public Use
  Company Number: US-AKRON, INC.-2083950

PATIENT
  Sex: Female

DRUGS (1)
  1. BRIMONIDINE TARTRATE O.S., 0.2% [Suspect]
     Active Substance: BRIMONIDINE TARTRATE

REACTIONS (2)
  - Vision blurred [Unknown]
  - Fatigue [Unknown]
